FAERS Safety Report 12559385 (Version 1)
Quarter: 2016Q3

REPORT INFORMATION
  Report Type: Spontaneous
  Country: US (occurrence: US)
  Receive Date: 20160715
  Receipt Date: 20160715
  Transmission Date: 20161109
  Serious: Yes (Other)
  Sender: FDA-Public Use
  Company Number: US-BAUSCH-BL-2016-016852

PATIENT
  Age: 80 Year
  Sex: Female

DRUGS (5)
  1. DILTIAZEM HYDROCHLORIDE EXTENDED RELEASE [Suspect]
     Active Substance: DILTIAZEM HYDROCHLORIDE
     Indication: HYPERTENSION
     Route: 048
     Dates: start: 20160613, end: 201606
  2. VERAPAMIL ER [Concomitant]
     Active Substance: VERAPAMIL HYDROCHLORIDE
     Indication: HYPERTENSION
     Route: 048
     Dates: start: 20160520
  3. DIAZEPAM. [Concomitant]
     Active Substance: DIAZEPAM
     Indication: HYPERTENSION
     Route: 048
  4. CALAN SR [Concomitant]
     Active Substance: VERAPAMIL HYDROCHLORIDE
     Indication: HYPERTENSION
     Route: 048
  5. DIAZEPAM. [Concomitant]
     Active Substance: DIAZEPAM
     Indication: ANXIETY

REACTIONS (4)
  - Malaise [Unknown]
  - Bedridden [Unknown]
  - Blood pressure increased [Recovered/Resolved]
  - Heart rate increased [Recovered/Resolved]

NARRATIVE: CASE EVENT DATE: 201606
